FAERS Safety Report 4280635-X (Version None)
Quarter: 2004Q1

REPORT INFORMATION
  Report Type: 
  Country: None (occurrence: None)
  Receive Date: 20040127
  Receipt Date: 20040120
  Transmission Date: 20041129
  Serious: Yes (Hospitalization)
  Sender: FDA-Public Use
  Company Number: 2004UW01060

PATIENT
  Age: 32 Year
  Sex: Female
  Weight: 70.3075 kg

DRUGS (3)
  1. SEROQUEL [Suspect]
     Indication: MOOD SWINGS
     Dosage: 25 MG PO
     Route: 048
     Dates: start: 20030101
  2. WELLBUTRIN SR [Concomitant]
  3. TRAZODONE HCL [Concomitant]

REACTIONS (3)
  - CONVULSION [None]
  - LOSS OF CONSCIOUSNESS [None]
  - PYREXIA [None]
